FAERS Safety Report 16138339 (Version 1)
Quarter: 2019Q1

REPORT INFORMATION
  Report Type: Spontaneous
  Country: PT (occurrence: PT)
  Receive Date: 20190330
  Receipt Date: 20190330
  Transmission Date: 20190418
  Serious: Yes (Other)
  Sender: FDA-Public Use
  Company Number: PT-ACCORD-116134

PATIENT
  Age: 55 Year
  Sex: Female

DRUGS (6)
  1. MOLINAR [Concomitant]
     Route: 048
     Dates: start: 20180921
  2. RAMIPRIL AUROVITAS [Concomitant]
     Active Substance: RAMIPRIL
     Route: 048
     Dates: start: 2018
  3. AZITHROMYCIN ANHYDROUS. [Concomitant]
     Active Substance: AZITHROMYCIN ANHYDROUS
     Route: 048
     Dates: start: 20181207
  4. ANASTROZOL ACCORD [Suspect]
     Active Substance: ANASTROZOLE
     Indication: BREAST CANCER
     Route: 048
     Dates: start: 20180918, end: 20181218
  5. PULMIBEN UNIDIA [Concomitant]
     Route: 048
  6. BETA-HISTINA AUROVITAS [Concomitant]
     Route: 048
     Dates: start: 20181022

REACTIONS (3)
  - Product substitution issue [Unknown]
  - Alopecia [Unknown]
  - Condition aggravated [Unknown]

NARRATIVE: CASE EVENT DATE: 201809
